FAERS Safety Report 14313528 (Version 1)
Quarter: 2017Q4

REPORT INFORMATION
  Report Type: Spontaneous
  Country: US (occurrence: US)
  Receive Date: 20171220
  Receipt Date: 20171220
  Transmission Date: 20180321
  Serious: No
  Sender: FDA-Public Use
  Company Number: None

PATIENT
  Age: 72 Year
  Sex: Female

DRUGS (19)
  1. FEMARA [Concomitant]
     Active Substance: LETROZOLE
  2. LASIX [Concomitant]
     Active Substance: FUROSEMIDE
  3. LISINOPRIL. [Concomitant]
     Active Substance: LISINOPRIL
  4. PERIOGARD SOL [Concomitant]
  5. ELIQUIS [Concomitant]
     Active Substance: APIXABAN
  6. PREDNISONE. [Concomitant]
     Active Substance: PREDNISONE
  7. IBRANCE [Suspect]
     Active Substance: PALBOCICLIB
     Indication: BREAST CANCER
     Dates: start: 20160406
  8. XGEVA [Suspect]
     Active Substance: DENOSUMAB
  9. BRILINTA [Concomitant]
     Active Substance: TICAGRELOR
  10. CARVEDILOL. [Concomitant]
     Active Substance: CARVEDILOL
  11. FENTANYL. [Concomitant]
     Active Substance: FENTANYL
  12. PANTOPRAZOLE [Concomitant]
     Active Substance: PANTOPRAZOLE
  13. OXYCODONE [Concomitant]
     Active Substance: OXYCODONE
  14. AMOXICILLIN. [Concomitant]
     Active Substance: AMOXICILLIN
  15. POTASSIUM POW CHLORIDE [Concomitant]
  16. ZOLOFT [Concomitant]
     Active Substance: SERTRALINE HYDROCHLORIDE
  17. LEVOTHYROXIN [Concomitant]
     Active Substance: LEVOTHYROXINE
  18. LACTULOSE. [Concomitant]
     Active Substance: LACTULOSE
  19. STOOL SOFTENER (DOCUSATE SODIUM) [Concomitant]
     Active Substance: DOCUSATE SODIUM

REACTIONS (5)
  - Osteomyelitis [None]
  - Osteonecrosis of jaw [None]
  - Interstitial lung disease [None]
  - Myocardial infarction [None]
  - Vomiting [None]
